FAERS Safety Report 4666696-4 (Version None)
Quarter: 2005Q2

REPORT INFORMATION
  Report Type: 
  Country: None (occurrence: None)
  Receive Date: 20050518
  Receipt Date: 20050506
  Transmission Date: 20051028
  Serious: Yes (Hospitalization, Other)
  Sender: FDA-Public Use
  Company Number: GBWYE464228FEB05

PATIENT
  Age: 15 Year
  Sex: Male

DRUGS (2)
  1. TAZOCIN (PIPERACILLIN/TAZOBACTAM, INJECTION) [Suspect]
     Indication: FEBRILE NEUTROPENIA
     Dosage: 1DOSE 1X PER 6 HR
     Route: 011
     Dates: start: 20050213, end: 20050218
  2. GENTAMICIN SULFATE [Concomitant]

REACTIONS (7)
  - CHILLS [None]
  - COUGH [None]
  - DRUG HYPERSENSITIVITY [None]
  - HYPERPYREXIA [None]
  - HYPOTENSION [None]
  - TACHYCARDIA [None]
  - THERAPY NON-RESPONDER [None]
